FAERS Safety Report 4995042-1 (Version None)
Quarter: 2006Q2

REPORT INFORMATION
  Report Type: 
  Country: None (occurrence: None)
  Receive Date: 20060503
  Receipt Date: 20060427
  Transmission Date: 20061013
  Serious: Yes (Other)
  Sender: FDA-Public Use
  Company Number: US200604002265

PATIENT
  Age: 43 Year
  Sex: Male

DRUGS (4)
  1. ZYPREXA [Suspect]
     Indication: BIPOLAR DISORDER
     Dosage: 5 MG, DAILY (1/D), ORAL
     Route: 048
  2. FLUOXETINE HCL [Concomitant]
  3. WELLBUTRIN [Concomitant]
  4. CRESTOR [Concomitant]

REACTIONS (1)
  - MYCOSIS FUNGOIDES [None]
